FAERS Safety Report 13740939 (Version 1)
Quarter: 2017Q3

REPORT INFORMATION
  Report Type: Spontaneous
  Country: PL (occurrence: PL)
  Receive Date: 20170711
  Receipt Date: 20170711
  Transmission Date: 20171127
  Serious: Yes (Hospitalization)
  Sender: FDA-Public Use
  Company Number: PL-BAXTER-2017BAX025387

PATIENT
  Age: 26 Year
  Sex: Female
  Weight: 84.5 kg

DRUGS (1)
  1. THEOPHYLLINUM BAXTER [Suspect]
     Active Substance: THEOPHYLLINE ANHYDROUS
     Indication: ASTHMA
     Dosage: 2X300 MG
     Route: 042
     Dates: start: 20160308, end: 20160308

REACTIONS (3)
  - Agitation [Unknown]
  - Palpitations [Unknown]
  - Erythema [Unknown]

NARRATIVE: CASE EVENT DATE: 20160308
